FAERS Safety Report 8347743-5 (Version None)
Quarter: 2012Q2

REPORT INFORMATION
  Report Type: 
  Country: None (occurrence: None)
  Receive Date: 20120507
  Receipt Date: 20120425
  Transmission Date: 20120825
  Serious: Yes (Hospitalization, Other)
  Sender: FDA-Public Use
  Company Number: 2012P1017781

PATIENT
  Age: 3 Year
  Sex: Male

DRUGS (1)
  1. ALBENDAZOLE (NO PREF. NAME) [Suspect]
     Indication: INFECTION PARASITIC
     Dosage: 0.4 GM;PO
     Route: 048
     Dates: start: 20120418, end: 20120418

REACTIONS (5)
  - CONFUSIONAL STATE [None]
  - OVERDOSE [None]
  - VOMITING [None]
  - MUSCULAR WEAKNESS [None]
  - ASTHENIA [None]
